FAERS Safety Report 17073948 (Version 2)
Quarter: 2020Q2

REPORT INFORMATION
  Report Type: Spontaneous
  Country: CA (occurrence: CA)
  Receive Date: 20191126
  Receipt Date: 20200522
  Transmission Date: 20200713
  Serious: Yes (Death, Other)
  Sender: FDA-Public Use
  Company Number: CA-TEVA-2019-CA-1140803

PATIENT
  Age: 44 Year
  Sex: Male

DRUGS (13)
  1. DOXORUBICIN HYDROCHLORIDE. [Suspect]
     Active Substance: DOXORUBICIN HYDROCHLORIDE
     Indication: HAEMOPHAGOCYTIC LYMPHOHISTIOCYTOSIS
     Route: 065
  2. DOXORUBICIN HYDROCHLORIDE. [Suspect]
     Active Substance: DOXORUBICIN HYDROCHLORIDE
     Indication: DIFFUSE LARGE B-CELL LYMPHOMA
     Route: 065
  3. ETOPOSIDE. [Suspect]
     Active Substance: ETOPOSIDE
     Indication: HAEMOPHAGOCYTIC LYMPHOHISTIOCYTOSIS
     Route: 065
  4. CYCLOPHOSPHAMIDE. [Suspect]
     Active Substance: CYCLOPHOSPHAMIDE
     Indication: DIFFUSE LARGE B-CELL LYMPHOMA
     Route: 065
  5. FILGRASTIM [Suspect]
     Active Substance: FILGRASTIM
     Indication: HAEMOPHAGOCYTIC LYMPHOHISTIOCYTOSIS
     Route: 065
  6. PROCYTOX [Suspect]
     Active Substance: CYCLOPHOSPHAMIDE
     Indication: HAEMOPHAGOCYTIC LYMPHOHISTIOCYTOSIS
     Route: 042
  7. PROCYTOX [Suspect]
     Active Substance: CYCLOPHOSPHAMIDE
     Indication: DIFFUSE LARGE B-CELL LYMPHOMA
  8. CYCLOPHOSPHAMIDE. [Suspect]
     Active Substance: CYCLOPHOSPHAMIDE
     Indication: HAEMOPHAGOCYTIC LYMPHOHISTIOCYTOSIS
     Route: 065
  9. ETOPOSIDE. [Suspect]
     Active Substance: ETOPOSIDE
     Indication: DIFFUSE LARGE B-CELL LYMPHOMA
     Route: 065
  10. FILGRASTIM [Suspect]
     Active Substance: FILGRASTIM
     Indication: DIFFUSE LARGE B-CELL LYMPHOMA
     Route: 065
  11. RITUXIMAB GP2013 [Suspect]
     Active Substance: RITUXIMAB
     Indication: DIFFUSE LARGE B-CELL LYMPHOMA
     Route: 065
  12. RITUXIMAB GP2013 [Suspect]
     Active Substance: RITUXIMAB
     Indication: HAEMOPHAGOCYTIC LYMPHOHISTIOCYTOSIS
  13. DOXORUBICIN HYDROCHLORIDE. [Suspect]
     Active Substance: DOXORUBICIN HYDROCHLORIDE
     Route: 065

REACTIONS (9)
  - Febrile neutropenia [Fatal]
  - Intentional product use issue [Unknown]
  - Pneumonia klebsiella [Fatal]
  - Scedosporium infection [Fatal]
  - Product use in unapproved indication [Unknown]
  - Escherichia infection [Fatal]
  - Off label use [Unknown]
  - Streptococcal infection [Fatal]
  - Product use issue [Unknown]
